FAERS Safety Report 5419650-9 (Version None)
Quarter: 2007Q3

REPORT INFORMATION
  Report Type: 
  Country: None (occurrence: None)
  Receive Date: 20070816
  Receipt Date: 20070816
  Transmission Date: 20080115
  Serious: Yes (Life-Threatening, Hospitalization)
  Sender: FDA-Public Use
  Company Number: None

PATIENT
  Age: 44 Year
  Sex: Female

DRUGS (1)
  1. MULTIHANCE [Suspect]
     Indication: DIAGNOSTIC PROCEDURE
     Dosage: 529 MG/ML -BOX- ONE TIME IV
     Route: 042
     Dates: start: 20070725, end: 20070725

REACTIONS (5)
  - CARDIO-RESPIRATORY ARREST [None]
  - DYSPNOEA [None]
  - FALL [None]
  - HYPOAESTHESIA [None]
  - PARAESTHESIA [None]
